FAERS Safety Report 9040189 (Version 1)
Quarter: 2013Q1

REPORT INFORMATION
  Report Type: Report from Study
  Country: US (occurrence: US)
  Receive Date: 20130129
  Receipt Date: 20130129
  Transmission Date: 20140127
  Serious: No
  Sender: FDA-Public Use
  Company Number: US-ABBOTT-12P-163-0889663-00

PATIENT
  Age: 31 Year
  Sex: Male

DRUGS (5)
  1. HUMIRA 40 MG/0.8 ML PEN [Suspect]
     Indication: CROHN^S DISEASE
     Dates: start: 201111
  2. CELEXA [Concomitant]
     Indication: DEPRESSION
  3. LOMOTIL [Concomitant]
     Indication: GASTROINTESTINAL MOTILITY DISORDER
  4. BENTYL [Concomitant]
     Indication: MUSCLE SPASMS
     Dosage: 1 PILL FOUR TIMES DAILY
  5. ADDERALL XR [Concomitant]
     Indication: ATTENTION DEFICIT/HYPERACTIVITY DISORDER

REACTIONS (2)
  - Drug effect decreased [Unknown]
  - Injection site pain [Unknown]
